FAERS Safety Report 4489088-X (Version None)
Quarter: 2004Q4

REPORT INFORMATION
  Report Type: 
  Country: None (occurrence: None)
  Receive Date: 20041028
  Receipt Date: 20041026
  Transmission Date: 20050328
  Serious: Yes (Other)
  Sender: FDA-Public Use
  Company Number: 003041

PATIENT
  Age: 18 Year
  Sex: Male
  Weight: 78.5 kg

DRUGS (3)
  1. CLARAVIS [Suspect]
     Indication: ACNE
     Dosage: 40.00 MG, BID, ORAL
     Route: 048
     Dates: start: 20010101, end: 20010101
  2. CLARAVIS [Suspect]
     Indication: ACNE
     Dosage: 40.00 MG, BID, ORAL
     Route: 048
     Dates: start: 20040801, end: 20041018
  3. WELLBUTRIN [Concomitant]

REACTIONS (10)
  - AGGRESSION [None]
  - ANGER [None]
  - ANXIETY [None]
  - DEPRESSION [None]
  - FATIGUE [None]
  - HALLUCINATION, AUDITORY [None]
  - HEADACHE [None]
  - OCULAR ICTERUS [None]
  - PSYCHOTIC DISORDER [None]
  - SUICIDAL IDEATION [None]
